FAERS Safety Report 13231821 (Version 10)
Quarter: 2017Q3

REPORT INFORMATION
  Report Type: Report from Study
  Country: None (occurrence: BE)
  Receive Date: 20170214
  Receipt Date: 20170711
  Transmission Date: 20171127
  Serious: Yes (Death, Hospitalization)
  Sender: FDA-Public Use
  Company Number: BE-ABBVIE-17P-013-1868675-00

PATIENT
  Age: 70 Year
  Sex: Female

DRUGS (12)
  1. DUODOPA [Suspect]
     Active Substance: CARBIDOPA\LEVODOPA
     Indication: PARKINSON^S DISEASE
     Dosage: AM: 7ML; CD: 3.5ML/H FOR 16HRS; ED: 1.5ML
     Route: 050
     Dates: start: 20140303, end: 20140307
  2. PANTOMED (PANTOPRAZOLE SODIUM) [Concomitant]
     Active Substance: PANTOPRAZOLE SODIUM
     Indication: PRODUCT USED FOR UNKNOWN INDICATION
  3. DAFLON [Concomitant]
     Active Substance: DIOSMIN\HESPERIDIN
     Indication: PRODUCT USED FOR UNKNOWN INDICATION
  4. DUODOPA [Suspect]
     Active Substance: CARBIDOPA\LEVODOPA
     Dosage: DOSAGES CONTINUOUSLY MONITORED AND ADJUSTED
     Route: 050
     Dates: start: 20140307, end: 20160810
  5. DUODOPA [Suspect]
     Active Substance: CARBIDOPA\LEVODOPA
     Dosage: AM=7ML, CD=3ML/HR DURING 16HRS, ED=2.2ML, ND=1.7ML/HR DURING 8HRS
     Route: 050
     Dates: start: 20170222, end: 20170609
  6. DUODOPA [Suspect]
     Active Substance: CARBIDOPA\LEVODOPA
     Dosage: MD= 7 ML; CD= 2.0 ML/H DURING 16 HRS; EDA= 1.7 ML; ND= 1.0 ML/H?DURING 8 HRS
     Route: 050
     Dates: start: 20170707
  7. DUODOPA [Suspect]
     Active Substance: CARBIDOPA\LEVODOPA
     Dosage: AM=2.2ML, CD=2.2ML/HR DURING 16HRS, ED=2.2ML, ND=1.7ML/HR DURING 8HRS
     Route: 050
     Dates: end: 20170222
  8. DUODOPA [Suspect]
     Active Substance: CARBIDOPA\LEVODOPA
     Dosage: AM: 7ML; CD: 3.0ML/H FOR 16HRS; ND: 1;7ML/H FOR 8HRS; ED: 2.2ML
     Route: 050
     Dates: start: 20160810
  9. LOORTAN [Concomitant]
     Indication: PRODUCT USED FOR UNKNOWN INDICATION
  10. KEPPRA [Concomitant]
     Active Substance: LEVETIRACETAM
     Indication: PRODUCT USED FOR UNKNOWN INDICATION
  11. DUODOPA [Suspect]
     Active Substance: CARBIDOPA\LEVODOPA
     Dosage: MD=7ML?CD=1.7ML/HR DURING 16HRS?EDA=2.2ML
     Route: 050
     Dates: start: 20170609, end: 20170707
  12. RIVOTRIL [Concomitant]
     Active Substance: CLONAZEPAM
     Indication: PRODUCT USED FOR UNKNOWN INDICATION

REACTIONS (11)
  - Balance disorder [Unknown]
  - Lung disorder [Unknown]
  - Freezing phenomenon [Unknown]
  - Stoma site hypergranulation [Not Recovered/Not Resolved]
  - Sepsis [Unknown]
  - Confusional state [Unknown]
  - Drug administration error [Recovered/Resolved]
  - Fall [Unknown]
  - Respiratory disorder [Unknown]
  - Death [Fatal]
  - Choking [Unknown]

NARRATIVE: CASE EVENT DATE: 20170601
